FAERS Safety Report 8600901-4 (Version None)
Quarter: 2012Q3

REPORT INFORMATION
  Report Type: 
  Country: None (occurrence: None)
  Receive Date: 20120817
  Receipt Date: 20120807
  Transmission Date: 20120928
  Serious: Yes (Hospitalization)
  Sender: FDA-Public Use
  Company Number: US-BAYER-2012-081306

PATIENT
  Age: 36 Year
  Sex: Female
  Weight: 108.9 kg

DRUGS (4)
  1. YASMIN [Suspect]
     Dosage: UNK
  2. DROSPIRENONE AND ETHINYL ESTRADIOL [Suspect]
     Dosage: UNK
  3. YAZ [Suspect]
     Dosage: UNK
  4. CYCLOBENZAPRINE [Concomitant]
     Dosage: 10 MG, UNK
     Dates: start: 20100929

REACTIONS (1)
  - PULMONARY EMBOLISM [None]
